FAERS Safety Report 5289380-5 (Version None)
Quarter: 2007Q2

REPORT INFORMATION
  Report Type: 
  Country: None (occurrence: None)
  Receive Date: 20070404
  Receipt Date: 20070404
  Transmission Date: 20071010
  Serious: Yes (Hospitalization)
  Sender: FDA-Public Use
  Company Number: None

PATIENT
  Age: 38 Year
  Sex: Male
  Weight: 93.5 kg

DRUGS (1)
  1. PERCOCET [Suspect]
     Indication: SUICIDE ATTEMPT
     Dosage: 1 TAB  Q4H PRN  PO
     Route: 048
     Dates: start: 20070327, end: 20070327

REACTIONS (13)
  - AGGRESSION [None]
  - BLOOD PRESSURE SYSTOLIC INCREASED [None]
  - BREATH SOUNDS ABNORMAL [None]
  - CREPITATIONS [None]
  - DRUG LEVEL INCREASED [None]
  - HEART RATE INCREASED [None]
  - LOSS OF CONSCIOUSNESS [None]
  - MULTIPLE DRUG OVERDOSE INTENTIONAL [None]
  - MYDRIASIS [None]
  - RESPIRATORY RATE INCREASED [None]
  - RETCHING [None]
  - SUICIDE ATTEMPT [None]
  - TACHYPNOEA [None]
